FAERS Safety Report 23231943 (Version 1)
Quarter: 2023Q4

REPORT INFORMATION
  Report Type: Spontaneous
  Country: US (occurrence: US)
  Receive Date: 20231127
  Receipt Date: 20231127
  Transmission Date: 20240109
  Serious: No
  Sender: FDA-Public Use
  Company Number: US-Calliditas-2023CAL01517

PATIENT
  Age: 47 Year
  Sex: Female

DRUGS (3)
  1. TARPEYO [Suspect]
     Active Substance: BUDESONIDE
     Indication: IgA nephropathy
     Route: 048
     Dates: start: 20231027
  2. LISINOPRIL [Concomitant]
     Active Substance: LISINOPRIL
  3. VALSARTAN [Concomitant]
     Active Substance: VALSARTAN

REACTIONS (2)
  - Increased appetite [Unknown]
  - Pain in extremity [Unknown]
